FAERS Safety Report 15465680 (Version 1)
Quarter: 2018Q4

REPORT INFORMATION
  Report Type: Spontaneous
  Country: US (occurrence: US)
  Receive Date: 20181004
  Receipt Date: 20181004
  Transmission Date: 20190204
  Serious: Yes (Other)
  Sender: FDA-Public Use
  Company Number: US-SHIRE-US201837456

PATIENT
  Age: 32 Year
  Sex: Female

DRUGS (1)
  1. FIRAZYR [Suspect]
     Active Substance: ICATIBANT ACETATE
     Indication: PRODUCT USED FOR UNKNOWN INDICATION
     Dosage: 30 MG, UNK
     Route: 065
     Dates: start: 20180406

REACTIONS (5)
  - Cardiac arrest [Unknown]
  - Feeding disorder [Unknown]
  - Weight decreased [Unknown]
  - Rib fracture [Unknown]
  - Food allergy [Unknown]

NARRATIVE: CASE EVENT DATE: 201804
